FAERS Safety Report 26192940 (Version 2)
Quarter: 2025Q4

REPORT INFORMATION
  Report Type: Spontaneous
  Country: JP (occurrence: JP)
  Receive Date: 20251223
  Receipt Date: 20251229
  Transmission Date: 20260117
  Serious: Yes (Other)
  Sender: AMGEN
  Company Number: JP-AMGEN-JPNSP2025250456

PATIENT

DRUGS (2)
  1. IMDELLTRA [Suspect]
     Active Substance: TARLATAMAB-DLLE
     Indication: Small cell lung cancer
     Dosage: 1 MILLIGRAM
     Route: 040
     Dates: start: 20251211
  2. IMDELLTRA [Suspect]
     Active Substance: TARLATAMAB-DLLE
     Dosage: 10 MILLIGRAM, DAY-8 DOSE
     Route: 040
     Dates: start: 20251218

REACTIONS (4)
  - Oxygen therapy [Recovering/Resolving]
  - Pyrexia [Recovered/Resolved]
  - Blood pressure systolic decreased [Recovering/Resolving]
  - Time perception altered [Unknown]

NARRATIVE: CASE EVENT DATE: 20251211
